FAERS Safety Report 7559136-9 (Version None)
Quarter: 2011Q2

REPORT INFORMATION
  Report Type: 
  Country: None (occurrence: None)
  Receive Date: 20110613
  Receipt Date: 20110527
  Transmission Date: 20111010
  Serious: Yes (Other)
  Sender: FDA-Public Use
  Company Number: AUR-APL-2011-01411

PATIENT
  Age: 23 Year
  Sex: Female

DRUGS (5)
  1. TOPAMAX [Concomitant]
  2. SYMBICORT [Concomitant]
  3. LAMOTRIGINE [Suspect]
     Indication: CONVULSION
     Dosage: 25MG -TID-ORAL
     Route: 048
  4. LYRICA [Suspect]
     Indication: EPILEPSY
     Dosage: 25MG- DAILY- ORAL
     Route: 048
     Dates: start: 20110301
  5. DEPAKOTE [Concomitant]

REACTIONS (2)
  - PITYRIASIS ROSEA [None]
  - URTICARIA [None]
